FAERS Safety Report 11723251 (Version 1)
Quarter: 2015Q4

REPORT INFORMATION
  Report Type: Spontaneous
  Country: US (occurrence: None)
  Receive Date: 20151110
  Receipt Date: 20151110
  Transmission Date: 20160304
  Serious: Yes (Life-Threatening)
  Sender: FDA-Public Use
  Company Number: None

PATIENT
  Age: 57 Year
  Sex: Male
  Weight: 92.08 kg

DRUGS (4)
  1. HCTZ [Concomitant]
     Active Substance: HYDROCHLOROTHIAZIDE
  2. NAPROXEN. [Concomitant]
     Active Substance: NAPROXEN
  3. PERPHENAZINE 16MG QUALITEST V 4943 GRAY PILL [Suspect]
     Active Substance: PERPHENAZINE
     Indication: SCHIZOPHRENIA
     Dosage: 1 PILL BEFORE BEDTIME,  ONCE ?
     Route: 048
     Dates: start: 20150929, end: 20151008
  4. LISINOPRIL. [Concomitant]
     Active Substance: LISINOPRIL

REACTIONS (3)
  - Tremor [None]
  - Blood glucose decreased [None]
  - Pharyngeal oedema [None]

NARRATIVE: CASE EVENT DATE: 20151008
